FAERS Safety Report 18436103 (Version 1)
Quarter: 2020Q4

REPORT INFORMATION
  Report Type: Spontaneous
  Country: US (occurrence: US)
  Receive Date: 20201028
  Receipt Date: 20201028
  Transmission Date: 20210114
  Serious: Yes (Hospitalization)
  Sender: FDA-Public Use
  Company Number: None

PATIENT
  Age: 59 Year
  Sex: Female
  Weight: 56.7 kg

DRUGS (1)
  1. TEMOZOLOMIDE. [Suspect]
     Active Substance: TEMOZOLOMIDE
     Dates: end: 20200918

REACTIONS (6)
  - Syncope [None]
  - Seizure [None]
  - Anal incontinence [None]
  - Urinary incontinence [None]
  - Pulmonary embolism [None]
  - Head injury [None]

NARRATIVE: CASE EVENT DATE: 20201016
